FAERS Safety Report 6606415-5 (Version None)
Quarter: 2010Q1

REPORT INFORMATION
  Report Type: 
  Country: None (occurrence: None)
  Receive Date: 20100226
  Receipt Date: 20100218
  Transmission Date: 20100710
  Serious: Yes (Other)
  Sender: FDA-Public Use
  Company Number: DE-PFIZER INC-2010021065

PATIENT
  Age: 76 Year
  Sex: Male

DRUGS (5)
  1. REVATIO [Suspect]
     Indication: PULMONARY ARTERIAL HYPERTENSION
     Dosage: 20 MG, 3X/DAY
     Route: 048
     Dates: start: 20100203
  2. CUMADIN [Interacting]
     Indication: ARRHYTHMIA
     Dosage: UNK
  3. ATACAND [Concomitant]
  4. SPIRONOLACTONE [Concomitant]
  5. TORASEMIDE [Concomitant]

REACTIONS (7)
  - DIZZINESS [None]
  - DRUG INTERACTION [None]
  - DYSPEPSIA [None]
  - EPISTAXIS [None]
  - HEADACHE [None]
  - INTERNATIONAL NORMALISED RATIO DECREASED [None]
  - INTERNATIONAL NORMALISED RATIO INCREASED [None]
